FAERS Safety Report 8580277-1 (Version None)
Quarter: 2012Q3

REPORT INFORMATION
  Report Type: 
  Country: None (occurrence: None)
  Receive Date: 20120808
  Receipt Date: 20120725
  Transmission Date: 20120928
  Serious: Yes (Other)
  Sender: FDA-Public Use
  Company Number: US-MYLANLABS-2012S1015538

PATIENT
  Age: 14 Month
  Sex: Male

DRUGS (2)
  1. MELPHALAN HYDROCHLORIDE [Suspect]
     Indication: RETINOBLASTOMA UNILATERAL
     Dosage: 5MG
     Route: 013
  2. CARBOPLATIN [Suspect]
     Indication: RETINOBLASTOMA UNILATERAL
     Dosage: 30MG
     Route: 013

REACTIONS (2)
  - IRIS NEOVASCULARISATION [None]
  - CAROTID ARTERY OCCLUSION [None]
